FAERS Safety Report 6269342-1 (Version None)
Quarter: 2009Q3

REPORT INFORMATION
  Report Type: 
  Country: None (occurrence: None)
  Receive Date: 20090715
  Receipt Date: 20090701
  Transmission Date: 20100115
  Serious: Yes (Death)
  Sender: FDA-Public Use
  Company Number: -MYLANLABS-2009S1011745

PATIENT
  Sex: Male

DRUGS (1)
  1. FLUOXETINE HCL [Suspect]
     Indication: DEPRESSION
     Route: 063

REACTIONS (2)
  - CARDIOVASCULAR DISORDER [None]
  - CEREBRAL DISORDER [None]
